FAERS Safety Report 5949725-7 (Version None)
Quarter: 2008Q4

REPORT INFORMATION
  Report Type: 
  Country: None (occurrence: None)
  Receive Date: 20081112
  Receipt Date: 20081001
  Transmission Date: 20090506
  Serious: No
  Sender: FDA-Public Use
  Company Number: US-BAYER-200834705NA

PATIENT
  Age: 53 Year
  Sex: Female
  Weight: 84 kg

DRUGS (1)
  1. ULTRAVIST (PHARMACY BULK) [Suspect]
     Indication: COMPUTERISED TOMOGRAM HEAD
     Dosage: TOTAL DAILY DOSE: 50 ML  UNIT DOSE: 50 ML
     Route: 042
     Dates: start: 20080929, end: 20080929

REACTIONS (5)
  - COUGH [None]
  - HYPERSENSITIVITY [None]
  - NASAL CONGESTION [None]
  - SNEEZING [None]
  - THROAT IRRITATION [None]
